FAERS Safety Report 23921482 (Version 1)
Quarter: 2024Q2

REPORT INFORMATION
  Report Type: Spontaneous
  Country: CH (occurrence: CH)
  Receive Date: 20240530
  Receipt Date: 20240530
  Transmission Date: 20240716
  Serious: Yes (Other)
  Sender: FDA-Public Use
  Company Number: CH-ANIPHARMA-2024-CH-000013

PATIENT
  Age: 2 Decade
  Sex: Female

DRUGS (1)
  1. CLOBETASOL PROPIONATE [Suspect]
     Active Substance: CLOBETASOL PROPIONATE
     Indication: Psoriasis
     Dosage: APPLIED TO WHOLE SKIN 3 TIMES PER WEEK
     Route: 061

REACTIONS (2)
  - Hemianopia heteronymous [Unknown]
  - Glaucoma [Unknown]
